FAERS Safety Report 9651012 (Version 1)
Quarter: 2013Q4

REPORT INFORMATION
  Report Type: Report from Study
  Country: US (occurrence: US)
  Receive Date: 20131029
  Receipt Date: 20131029
  Transmission Date: 20140711
  Serious: Yes (Hospitalization)
  Sender: FDA-Public Use
  Company Number: PHEH2013US022465

PATIENT
  Age: 34 Year
  Sex: Male

DRUGS (2)
  1. TOBI [Suspect]
     Dosage: 300 MG, BID
     Route: 055
  2. TOBI [Suspect]
     Route: 042

REACTIONS (4)
  - Poisoning [Recovered/Resolved]
  - Gait disturbance [Recovered/Resolved]
  - Dizziness [Recovered/Resolved]
  - Headache [Recovered/Resolved]
